FAERS Safety Report 25927502 (Version 1)
Quarter: 2025Q4

REPORT INFORMATION
  Report Type: Report from Study
  Country: US (occurrence: US)
  Receive Date: 20251015
  Receipt Date: 20251015
  Transmission Date: 20260117
  Serious: Yes (Other)
  Sender: ABBVIE
  Company Number: US-ABBVIE-6502382

PATIENT
  Age: 59 Year
  Sex: Female

DRUGS (1)
  1. SKYRIZI [Suspect]
     Active Substance: RISANKIZUMAB-RZAA
     Indication: Psoriasis
     Dosage: DRUG END DATE: 2025
     Route: 058
     Dates: start: 20250913

REACTIONS (2)
  - Skin cancer [Not Recovered/Not Resolved]
  - Skin plaque [Unknown]

NARRATIVE: CASE EVENT DATE: 20250101
